FAERS Safety Report 10651870 (Version 1)
Quarter: 2014Q4

REPORT INFORMATION
  Report Type: Spontaneous
  Country: US (occurrence: None)
  Receive Date: 20141205
  Receipt Date: 20141205
  Transmission Date: 20150529
  Serious: No
  Sender: FDA-Public Use
  Company Number: 2014TUS010232

PATIENT
  Sex: Male

DRUGS (1)
  1. OSENI [Suspect]
     Active Substance: ALOGLIPTIN BENZOATE\PIOGLITAZONE HYDROCHLORIDE
     Indication: PRODUCT USED FOR UNKNOWN INDICATION

REACTIONS (7)
  - Hepatic pain [None]
  - Urine odour abnormal [None]
  - Abdominal pain upper [None]
  - Arthralgia [None]
  - Renal pain [None]
  - Unevaluable event [None]
  - Blood glucose abnormal [None]
